FAERS Safety Report 14252048 (Version 1)
Quarter: 2017Q4

REPORT INFORMATION
  Report Type: Report from Study
  Country: None (occurrence: US)
  Receive Date: 20171205
  Receipt Date: 20171205
  Transmission Date: 20180321
  Serious: Yes (Hospitalization)
  Sender: FDA-Public Use
  Company Number: US-ABBVIE-17K-163-2181029-00

PATIENT
  Age: 51 Year
  Sex: Male

DRUGS (2)
  1. HUMIRA [Suspect]
     Active Substance: ADALIMUMAB
     Indication: RHEUMATOID ARTHRITIS
     Route: 058
     Dates: start: 20170727
  2. METHOTREXATE. [Suspect]
     Active Substance: METHOTREXATE
     Indication: PRODUCT USED FOR UNKNOWN INDICATION
     Route: 065
     Dates: start: 201706, end: 201711

REACTIONS (11)
  - Hyperphagia [Unknown]
  - Injection site pain [Recovered/Resolved with Sequelae]
  - Weight decreased [Recovered/Resolved]
  - Stress [Unknown]
  - Glycosylated haemoglobin increased [Unknown]
  - Hepatic steatosis [Unknown]
  - Injection site haemorrhage [Recovered/Resolved with Sequelae]
  - Mobility decreased [Unknown]
  - Body mass index increased [Unknown]
  - Malaise [Unknown]
  - Drug effect variable [Unknown]

NARRATIVE: CASE EVENT DATE: 2017
